FAERS Safety Report 24728221 (Version 2)
Quarter: 2024Q4

REPORT INFORMATION
  Report Type: Spontaneous
  Country: US (occurrence: US)
  Receive Date: 20241212
  Receipt Date: 20241217
  Transmission Date: 20250114
  Serious: Yes (Other)
  Sender: NOVO NORDISK
  Company Number: US-NOVOPROD-1325850

PATIENT
  Age: 48 Year
  Sex: Female

DRUGS (2)
  1. OZEMPIC [Suspect]
     Active Substance: SEMAGLUTIDE
     Indication: Blood cholesterol increased
  2. OZEMPIC [Suspect]
     Active Substance: SEMAGLUTIDE
     Indication: Insulin resistance
     Dosage: 0.25 MG, QW
     Route: 058
     Dates: start: 20240405, end: 20240715

REACTIONS (7)
  - Blood pressure increased [Recovered/Resolved]
  - Aortic aneurysm [Recovered/Resolved]
  - Heart rate increased [Recovered/Resolved]
  - Drug intolerance [Unknown]
  - Hypoglycaemia [Recovered/Resolved]
  - Inappropriate schedule of product administration [Recovered/Resolved]
  - Product use in unapproved indication [Recovered/Resolved]

NARRATIVE: CASE EVENT DATE: 20240405
